FAERS Safety Report 9563537 (Version 1)
Quarter: 2013Q3

REPORT INFORMATION
  Report Type: Spontaneous
  Country: US (occurrence: None)
  Receive Date: 20130926
  Receipt Date: 20130926
  Transmission Date: 20140515
  Serious: Yes (Hospitalization)
  Sender: FDA-Public Use
  Company Number: None

PATIENT
  Age: 33 Year
  Sex: Female

DRUGS (1)
  1. TECFIDERA 240MG BIOGEN [Suspect]
     Dosage: 1 CAPSULE
     Route: 048
     Dates: start: 20130420

REACTIONS (1)
  - Convulsion [None]
